FAERS Safety Report 24631269 (Version 1)
Quarter: 2024Q4

REPORT INFORMATION
  Report Type: Spontaneous
  Country: US (occurrence: None)
  Receive Date: 20241118
  Receipt Date: 20241118
  Transmission Date: 20250114
  Serious: Yes (Death)
  Sender: Public
  Company Number: None

PATIENT
  Age: 82 Year
  Sex: Male

DRUGS (11)
  1. ABIRATERONE ACETATE [Suspect]
     Active Substance: ABIRATERONE ACETATE
     Indication: Prostate cancer
     Dosage: FREQ: TAKE 2 TABLETS (1,000 MG) BY MOUTH DAILY
     Route: 048
     Dates: start: 20240627, end: 20241002
  2. ACETAMINOPHEN [Concomitant]
     Active Substance: ACETAMINOPHEN
  3. CLEARLAX [Concomitant]
     Active Substance: POLYETHYLENE GLYCOL 3350
  4. CYCLOBENZAPRINE [Concomitant]
     Active Substance: CYCLOBENZAPRINE
  5. ELIQUIS [Concomitant]
     Active Substance: APIXABAN
  6. LAMICTAL [Concomitant]
     Active Substance: LAMOTRIGINE
  7. LIVALO [Concomitant]
     Active Substance: PITAVASTATIN CALCIUM
  8. METOPROLOL TARTRATE [Concomitant]
     Active Substance: METOPROLOL TARTRATE
  9. NITROGLYCERN SUB [Concomitant]
  10. OMEPRAZOLE [Concomitant]
     Active Substance: OMEPRAZOLE
  11. RANOLAZINE [Concomitant]
     Active Substance: RANOLAZINE

REACTIONS (1)
  - Death [None]

NARRATIVE: CASE EVENT DATE: 20241002
